FAERS Safety Report 5103610-1 (Version None)
Quarter: 2006Q3

REPORT INFORMATION
  Report Type: 
  Country: None (occurrence: None)
  Receive Date: 20060912
  Receipt Date: 20060912
  Transmission Date: 20061208
  Serious: Yes (Other)
  Sender: FDA-Public Use
  Company Number: None

PATIENT
  Age: 45 Year
  Sex: Female
  Weight: 115 kg

DRUGS (1)
  1. BACTRIM DS [Suspect]
     Indication: CELLULITIS
     Dosage: 800MG / 160MG    1 TABLET PO Q12H   PO
     Route: 048
     Dates: start: 20060726, end: 20060730

REACTIONS (1)
  - BLOOD CREATININE INCREASED [None]
